FAERS Safety Report 6547224-5 (Version None)
Quarter: 2010Q1

REPORT INFORMATION
  Report Type: 
  Country: None (occurrence: None)
  Receive Date: 20100122
  Receipt Date: 20100115
  Transmission Date: 20100710
  Serious: Yes (Life-Threatening)
  Sender: FDA-Public Use
  Company Number: DE-JNJFOC-20100107337

PATIENT
  Age: 70 Year
  Sex: Male

DRUGS (2)
  1. REOPRO [Suspect]
     Indication: DRUG USE FOR UNKNOWN INDICATION
     Dosage: FROM 04-OCT-2009 @20:43- 05-OCT-2009 @11:00
     Route: 042
  2. REOPRO [Suspect]
     Dosage: 20:30-20:32
     Route: 042

REACTIONS (1)
  - CARDIAC ARREST [None]
